FAERS Safety Report 15860946 (Version 2)
Quarter: 2019Q1

REPORT INFORMATION
  Report Type: Spontaneous
  Country: US (occurrence: US)
  Receive Date: 20190124
  Receipt Date: 20190212
  Transmission Date: 20190417
  Serious: No
  Sender: FDA-Public Use
  Company Number: US-ASTRAZENECA-2019SE00628

PATIENT
  Age: 22998 Day
  Sex: Male
  Weight: 140.6 kg

DRUGS (1)
  1. BYDUREON BCISE [Suspect]
     Active Substance: EXENATIDE
     Indication: DIABETES MELLITUS
     Route: 058
     Dates: start: 20181129

REACTIONS (10)
  - Intentional product misuse [Recovering/Resolving]
  - Toothache [Not Recovered/Not Resolved]
  - Wrong technique in device usage process [Unknown]
  - Device malfunction [Unknown]
  - Injection site mass [Recovering/Resolving]
  - Injection site bruising [Recovered/Resolved]
  - Blood glucose fluctuation [Unknown]
  - Pruritus [Recovering/Resolving]
  - Drug ineffective [Unknown]
  - Device leakage [Unknown]

NARRATIVE: CASE EVENT DATE: 20181129
